FAERS Safety Report 8502398-1 (Version None)
Quarter: 2012Q3

REPORT INFORMATION
  Report Type: 
  Country: None (occurrence: None)
  Receive Date: 20120711
  Receipt Date: 20120703
  Transmission Date: 20120928
  Serious: Yes (Other)
  Sender: FDA-Public Use
  Company Number: US-ABBOTT-12P-163-0952481-00

PATIENT
  Sex: Female
  Weight: 96.702 kg

DRUGS (10)
  1. OMEPRAZOLE [Concomitant]
     Indication: GASTROOESOPHAGEAL REFLUX DISEASE
  2. POTASSIUM CHLORIDE [Concomitant]
     Indication: PRODUCT USED FOR UNKNOWN INDICATION
  3. DIOVAN [Concomitant]
     Indication: HYPERTENSION
  4. METFORMIN HCL [Concomitant]
     Indication: DIABETES MELLITUS
  5. LASIX [Concomitant]
     Indication: PRODUCT USED FOR UNKNOWN INDICATION
     Dosage: LONG TIME
  6. VENTOLIN [Concomitant]
     Indication: ASTHMA
     Dosage: 2 PUFFS
  7. HUMIRA [Suspect]
     Indication: CROHN'S DISEASE
     Dosage: RECENTLY DISCONTINUED
     Dates: start: 20040101, end: 20120528
  8. AMITIZA [Concomitant]
     Indication: CONSTIPATION
  9. PROMETHAZINE [Concomitant]
     Indication: NAUSEA
  10. HUMIRA [Suspect]
     Dates: start: 20120528

REACTIONS (2)
  - HYPOTENSION [None]
  - CARDIOMYOPATHY [None]
